FAERS Safety Report 22810585 (Version 3)
Quarter: 2024Q2

REPORT INFORMATION
  Report Type: Spontaneous
  Country: IL (occurrence: IL)
  Receive Date: 20230810
  Receipt Date: 20240517
  Transmission Date: 20240716
  Serious: No
  Sender: FDA-Public Use
  Company Number: IL-RIGEL PHARMACEUTICALS, INC.-2023FOS000816

PATIENT
  Sex: Female

DRUGS (1)
  1. TAVALISSE [Suspect]
     Active Substance: FOSTAMATINIB
     Indication: Immune thrombocytopenia
     Dosage: 100 MG, QD
     Route: 065

REACTIONS (3)
  - Platelet count [Unknown]
  - Product storage error [Unknown]
  - Product use issue [Unknown]
